FAERS Safety Report 8345743 (Version 2)
Quarter: 2012Q4

REPORT INFORMATION
  Report Type: 
  Country: US (occurrence: None)
  Receive Date: 20111209
  Receipt Date: 20120608
  Transmission Date: 20130627
  Serious: Yes (Hospitalization)
  Sender: FDA-Public Use
  Company Number: TH-2011-00384

PATIENT
  Age: 65 Year
  Sex: Male
  Weight: 111 kg

DRUGS (2)
  1. EGRIFTA [Suspect]
     Indication: LIPODYSTROPHY
     Dosage: 1 IN 1 D
     Dates: start: 201108, end: 201110
  2. ACTOPLUS-MET (METFORMIN HYDROCHLORIDE, PIOGLITAZONE HYDROCHLORIDE) [Concomitant]

REACTIONS (8)
  - Blood glucose increased [None]
  - Oedema peripheral [None]
  - Joint swelling [None]
  - Incorrect dose administered [None]
  - Chest discomfort [None]
  - Fluid retention [None]
  - Sinusitis [None]
  - Drug hypersensitivity [None]
